FAERS Safety Report 16626402 (Version 1)
Quarter: 2019Q3

REPORT INFORMATION
  Report Type: Spontaneous
  Country: US (occurrence: US)
  Receive Date: 20190724
  Receipt Date: 20190724
  Transmission Date: 20191004
  Serious: Yes (Hospitalization)
  Sender: FDA-Public Use
  Company Number: US-STRIDES ARCOLAB LIMITED-2019SP003603

PATIENT
  Age: 72 Year
  Sex: Female

DRUGS (5)
  1. VALGANCICLOVIR. [Suspect]
     Active Substance: VALGANCICLOVIR
     Indication: HEART TRANSPLANT
     Dosage: UNK
     Route: 065
  2. BACTRIM [Suspect]
     Active Substance: SULFAMETHOXAZOLE\TRIMETHOPRIM
     Indication: HEART TRANSPLANT
     Dosage: UNK
     Route: 065
  3. MYCOPHENOLATE MOFETIL. [Suspect]
     Active Substance: MYCOPHENOLATE MOFETIL
     Indication: HEART TRANSPLANT
     Dosage: UNK
     Route: 065
  4. PREDNISOLONE. [Suspect]
     Active Substance: PREDNISOLONE
     Indication: HEART TRANSPLANT
     Dosage: UNK
     Route: 065
  5. TACROLIMUS. [Suspect]
     Active Substance: TACROLIMUS
     Indication: HEART TRANSPLANT
     Dosage: UNK
     Route: 065

REACTIONS (10)
  - Decreased appetite [Unknown]
  - Crepitations [Recovered/Resolved]
  - Anaemia [Unknown]
  - Tachycardia [Recovered/Resolved]
  - Fatigue [Recovered/Resolved]
  - Pyrexia [Unknown]
  - Bronchopulmonary aspergillosis [Recovered/Resolved]
  - Leukopenia [Unknown]
  - Acute kidney injury [Unknown]
  - Confusional state [Recovered/Resolved]
